FAERS Safety Report 10229989 (Version 1)
Quarter: 2014Q2

REPORT INFORMATION
  Report Type: Spontaneous
  Country: US (occurrence: US)
  Receive Date: 20140611
  Receipt Date: 20140611
  Transmission Date: 20141212
  Serious: Yes (Other)
  Sender: FDA-Public Use
  Company Number: US-PFIZER INC-2014159460

PATIENT
  Sex: Female

DRUGS (1)
  1. NEURONTIN [Suspect]
     Dosage: 300 MG, UNK

REACTIONS (4)
  - Pharyngeal oedema [Unknown]
  - Heart rate increased [Unknown]
  - Hypoaesthesia [Unknown]
  - Headache [Unknown]
